FAERS Safety Report 7799386-X (Version None)
Quarter: 2011Q4

REPORT INFORMATION
  Report Type: 
  Country: None (occurrence: None)
  Receive Date: 20111006
  Receipt Date: 20110927
  Transmission Date: 20120403
  Serious: Yes (Hospitalization)
  Sender: FDA-Public Use
  Company Number: FR-GENZYME-THYM-1002796

PATIENT
  Sex: Female

DRUGS (3)
  1. FLUDARABINE PHOSPHATE [Suspect]
     Indication: BONE MARROW CONDITIONING REGIMEN
     Dosage: 52.5 MG, UNK
     Route: 042
     Dates: start: 20110909, end: 20110913
  2. BUSULFAN [Suspect]
     Indication: BONE MARROW CONDITIONING REGIMEN
     Dosage: 56.4 MG, UNK
     Route: 042
     Dates: start: 20110910, end: 20110911
  3. THYMOGLOBULIN [Suspect]
     Indication: BONE MARROW CONDITIONING REGIMEN
     Dosage: 175 MG, QD
     Route: 042
     Dates: start: 20110912, end: 20110913

REACTIONS (1)
  - CYTOLYTIC HEPATITIS [None]
